FAERS Safety Report 4445484-8 (Version None)
Quarter: 2004Q3

REPORT INFORMATION
  Report Type: 
  Country: None (occurrence: None)
  Receive Date: 20040813
  Receipt Date: 20040525
  Transmission Date: 20050211
  Serious: Yes (Hospitalization)
  Sender: FDA-Public Use
  Company Number: M2004.0725

PATIENT
  Sex: Female

DRUGS (1)
  1. METFORMIN HCL [Suspect]

REACTIONS (2)
  - DIARRHOEA [None]
  - VOMITING [None]
